FAERS Safety Report 21258683 (Version 2)
Quarter: 2022Q3

REPORT INFORMATION
  Report Type: Report from Study
  Country: US (occurrence: US)
  Receive Date: 20220826
  Receipt Date: 20220909
  Transmission Date: 20221026
  Serious: Yes (Other)
  Sender: FDA-Public Use
  Company Number: US-JNJFOC-20220837890

PATIENT
  Age: 52 Year
  Sex: Female

DRUGS (3)
  1. SPRAVATO [Suspect]
     Active Substance: ESKETAMINE
     Indication: Depression
     Dosage: 56 MG, TOTAL OF 7 DOSES.
     Dates: start: 20220412, end: 20220531
  2. SPRAVATO [Suspect]
     Active Substance: ESKETAMINE
     Dosage: 84 MG, TOTAL OF 19 DOSES
     Dates: start: 20220603, end: 20220812
  3. SPRAVATO [Suspect]
     Active Substance: ESKETAMINE
     Dosage: MOST RECENT DOSE
     Dates: start: 20220816, end: 20220816

REACTIONS (8)
  - Paralysis [Recovered/Resolved]
  - Aspiration [Recovered/Resolved]
  - Suicidal ideation [Unknown]
  - Dyspnoea [Recovered/Resolved]
  - Respiratory rate decreased [Recovered/Resolved]
  - Sensory disturbance [Recovered/Resolved]
  - Cough [Recovered/Resolved]
  - Dissociation [Unknown]

NARRATIVE: CASE EVENT DATE: 20220101
